FAERS Safety Report 4374130-7 (Version None)
Quarter: 2004Q2

REPORT INFORMATION
  Report Type: 
  Country: None (occurrence: None)
  Receive Date: 20040609
  Receipt Date: 20030522
  Transmission Date: 20050107
  Serious: Yes (Life-Threatening)
  Sender: FDA-Public Use
  Company Number: 338507

PATIENT
  Age: 45 Year
  Sex: Female
  Weight: 65 kg

DRUGS (6)
  1. PEG-INTERFERON ALFA 2A (RO 25-8310) [Suspect]
     Route: 058
     Dates: start: 20030110, end: 20030214
  2. PEG-INTERFERON ALFA 2A (RO 25-8310) [Suspect]
     Route: 058
     Dates: start: 20030214, end: 20030520
  3. RIBAVIRIN [Suspect]
     Dosage: NO UNITS PROVIDED.
     Route: 048
     Dates: start: 20030110, end: 20030520
  4. AMANTADINE HCL [Suspect]
     Dosage: NO UNITS PROVIDED.
     Route: 048
     Dates: start: 20030314, end: 20030520
  5. PROPRANOLOL [Concomitant]
     Indication: PROPHYLAXIS
     Route: 048
     Dates: start: 20020605
  6. SANDOCAL [Concomitant]
     Indication: OSTEOPOROSIS PROPHYLAXIS
     Route: 048
     Dates: start: 20020605

REACTIONS (12)
  - ALANINE AMINOTRANSFERASE INCREASED [None]
  - ANAEMIA [None]
  - BLOOD ALKALINE PHOSPHATASE INCREASED [None]
  - BLOOD IRON DECREASED [None]
  - COLON CANCER [None]
  - DISEASE RECURRENCE [None]
  - GAMMA-GLUTAMYLTRANSFERASE INCREASED [None]
  - HEPATIC CIRRHOSIS [None]
  - HEPATIC FAILURE [None]
  - METASTASES TO LUNG [None]
  - RED BLOOD CELL COUNT INCREASED [None]
  - THROMBOCYTOPENIA [None]
